FAERS Safety Report 4803309-2 (Version None)
Quarter: 2005Q4

REPORT INFORMATION
  Report Type: 
  Country: None (occurrence: None)
  Receive Date: 20051013
  Receipt Date: 20050912
  Transmission Date: 20060501
  Serious: Yes (Other)
  Sender: FDA-Public Use
  Company Number: TRP_0448_2005

PATIENT
  Age: 30 Year
  Sex: Female

DRUGS (6)
  1. RIBASPHERE [Suspect]
     Indication: HEPATITIS C
     Dosage: DF, PO
     Route: 048
     Dates: start: 20050714
  2. PEG-INTRON/PEGINTERFERON ALFA-2B/SCHERING-PLOUGH/EDIPEN [Suspect]
     Indication: HEPATITIS C
     Dosage: DF, SC
     Route: 058
     Dates: start: 20050714
  3. ATIVAN [Concomitant]
  4. BUSPAR [Concomitant]
  5. MULTI-VITAMINS [Concomitant]
  6. MILK THISTLE [Concomitant]

REACTIONS (5)
  - AGITATION [None]
  - ANXIETY [None]
  - BIPOLAR DISORDER [None]
  - INSOMNIA [None]
  - REFUSAL OF TREATMENT BY PATIENT [None]
